FAERS Safety Report 9908881 (Version 1)
Quarter: 2014Q1

REPORT INFORMATION
  Report Type: Spontaneous
  Country: JP (occurrence: JP)
  Receive Date: 20140219
  Receipt Date: 20140219
  Transmission Date: 20141002
  Serious: Yes (Other)
  Sender: FDA-Public Use
  Company Number: JP-ASTELLAS-2014JP001303

PATIENT
  Age: 13 Year
  Sex: Male
  Weight: 50.3 kg

DRUGS (5)
  1. TACROLIMUS [Suspect]
     Indication: POLYMYOSITIS
     Route: 048
  2. PREDNISOLONE [Concomitant]
     Indication: POLYMYOSITIS
     Route: 048
  3. CICLOSPORIN [Concomitant]
     Indication: POLYMYOSITIS
     Route: 048
  4. METHOTREXATE [Concomitant]
     Indication: POLYMYOSITIS
     Route: 048
  5. MIZORIBINE [Concomitant]
     Indication: POLYMYOSITIS
     Route: 048

REACTIONS (2)
  - Drug ineffective for unapproved indication [Unknown]
  - Polymyositis [Recovering/Resolving]
